FAERS Safety Report 9167550 (Version 1)
Quarter: 2013Q1

REPORT INFORMATION
  Report Type: Report from Study
  Country: CA (occurrence: CA)
  Receive Date: 20130318
  Receipt Date: 20130318
  Transmission Date: 20140127
  Serious: Yes (Hospitalization)
  Sender: FDA-Public Use
  Company Number: CA-JNJFOC-20130302919

PATIENT
  Sex: Male
  Weight: 61 kg

DRUGS (5)
  1. REMICADE [Suspect]
     Indication: CROHN^S DISEASE
     Route: 042
     Dates: start: 2011
  2. SEROQUEL [Concomitant]
     Dosage: AT BEDTIME
     Route: 065
  3. AZATHIOPRINE [Concomitant]
     Route: 065
  4. FERROUS SULFATE [Concomitant]
     Route: 065
  5. VITAMIN B12 [Concomitant]
     Route: 065

REACTIONS (2)
  - Gastroenteritis [Recovering/Resolving]
  - Intestinal obstruction [Recovering/Resolving]
